FAERS Safety Report 5519148-3 (Version None)
Quarter: 2007Q4

REPORT INFORMATION
  Report Type: 
  Country: None (occurrence: None)
  Receive Date: 20071116
  Receipt Date: 20071112
  Transmission Date: 20080405
  Serious: Yes (Other)
  Sender: FDA-Public Use
  Company Number: US-BAYER-200712419BCC

PATIENT
  Age: 83 Year
  Sex: Male
  Weight: 102 kg

DRUGS (3)
  1. ALEVE [Suspect]
     Indication: ARTHRALGIA
     Dosage: UNIT DOSE: 220 MG
     Route: 048
     Dates: start: 20070726, end: 20070701
  2. COUMADIN [Interacting]
     Indication: DRUG USE FOR UNKNOWN INDICATION
  3. BENAZEPRIL HYDROCHLORIDE [Concomitant]

REACTIONS (3)
  - DIZZINESS [None]
  - HEART RATE DECREASED [None]
  - HEART RATE INCREASED [None]
